FAERS Safety Report 18933108 (Version 1)
Quarter: 2021Q1

REPORT INFORMATION
  Report Type: Spontaneous
  Country: US (occurrence: US)
  Receive Date: 20210224
  Receipt Date: 20210224
  Transmission Date: 20210420
  Serious: No
  Sender: FDA-Public Use
  Company Number: US-LANTHEUS-LMI-2020-00171

PATIENT
  Age: 50 Year
  Sex: Female
  Weight: 132 kg

DRUGS (1)
  1. DEFINITY [Suspect]
     Active Substance: PERFLUTREN
     Indication: STRESS ECHOCARDIOGRAM
     Dosage: 2 MILLILITER (1.5 ML DEFINITY PREPARED IN 8 ML NORMAL SALINE)
     Route: 040
     Dates: start: 20200304, end: 20200304

REACTIONS (2)
  - Back pain [Recovering/Resolving]
  - Muscle spasms [Recovering/Resolving]

NARRATIVE: CASE EVENT DATE: 20200304
